FAERS Safety Report 9337360 (Version 1)
Quarter: 2013Q2

REPORT INFORMATION
  Report Type: Spontaneous
  Country: US (occurrence: US)
  Receive Date: 20130607
  Receipt Date: 20130607
  Transmission Date: 20140414
  Serious: Yes (Death)
  Sender: FDA-Public Use
  Company Number: US-GLAXOSMITHKLINE-B0895153A

PATIENT
  Age: 10 Year
  Sex: Female

DRUGS (4)
  1. BUSULFAN [Suspect]
     Indication: CHEMOTHERAPY
     Dosage: 3MGK PER DAY
     Route: 065
  2. MELPHALAN [Suspect]
     Indication: CHEMOTHERAPY
     Dosage: 50MGM2 PER DAY
     Route: 065
  3. THIOTEPA [Suspect]
     Indication: CHEMOTHERAPY
     Dosage: 250MGM2 PER DAY
     Route: 065
  4. STEM CELL TRANSPLANT [Concomitant]
     Indication: PRODUCT USED FOR UNKNOWN INDICATION
     Route: 065

REACTIONS (12)
  - Lymphopenia [Unknown]
  - Hypogammaglobulinaemia [Unknown]
  - BK virus infection [Unknown]
  - Blood creatinine increased [Unknown]
  - Thrombocytopenia [Unknown]
  - Neutropenia [Unknown]
  - Thrombotic microangiopathy [Unknown]
  - Polyomavirus-associated nephropathy [Unknown]
  - Renal impairment [Unknown]
  - Convulsion [Unknown]
  - Apnoeic attack [Unknown]
  - Condition aggravated [Fatal]
